FAERS Safety Report 6221404-0 (Version None)
Quarter: 2009Q2

REPORT INFORMATION
  Report Type: 
  Country: None (occurrence: None)
  Receive Date: 20090608
  Receipt Date: 20090526
  Transmission Date: 20091009
  Serious: Yes (Hospitalization)
  Sender: FDA-Public Use
  Company Number: CIP09001449

PATIENT
  Age: 82 Year
  Sex: Female

DRUGS (6)
  1. RISEDRONATE SODIUM [Suspect]
     Indication: OSTEOPOROSIS
     Dosage: 17.5 MG ONCE WEEKLY, ORAL
     Route: 048
     Dates: start: 20080129, end: 20081015
  2. WARKMIN (ALFACALCIDOL) [Concomitant]
  3. VIT K CAP [Concomitant]
  4. ISALON (ALDIOXA) [Concomitant]
  5. ADOFEED (FLURBIPROFEN) [Concomitant]
  6. ELCITONIN (ELCATONIN) [Concomitant]

REACTIONS (1)
  - PANCYTOPENIA [None]
